FAERS Safety Report 17877316 (Version 1)
Quarter: 2020Q2

REPORT INFORMATION
  Report Type: Spontaneous
  Country: US (occurrence: US)
  Receive Date: 20200609
  Receipt Date: 20200609
  Transmission Date: 20200714
  Serious: No
  Sender: FDA-Public Use
  Company Number: US-BIOMARINAP-US-2020-130207

PATIENT
  Age: 11 Year
  Sex: Female

DRUGS (1)
  1. ALDURAZYME [Suspect]
     Active Substance: LARONIDASE
     Indication: MUCOPOLYSACCHARIDOSIS I
     Dosage: 23.2 MILLIGRAM, QOW
     Route: 042
     Dates: start: 20200305

REACTIONS (2)
  - Excessive cerumen production [Not Recovered/Not Resolved]
  - Hypoacusis [Not Recovered/Not Resolved]
